FAERS Safety Report 22119957 (Version 1)
Quarter: 2023Q1

REPORT INFORMATION
  Report Type: Report from Study
  Country: CZ (occurrence: CZ)
  Receive Date: 20230321
  Receipt Date: 20230321
  Transmission Date: 20230418
  Serious: Yes (Hospitalization, Other)
  Sender: FDA-Public Use
  Company Number: CZ-BAYER-2023A036467

PATIENT
  Age: 45 Year
  Sex: Female

DRUGS (3)
  1. MIRENA [Suspect]
     Active Substance: LEVONORGESTREL
     Indication: Contraception
     Dosage: 20?G/DAY
     Route: 015
     Dates: start: 20220923, end: 20221220
  2. ETHAMSYLATE [Concomitant]
     Active Substance: ETHAMSYLATE
  3. NORETHINDRONE [Concomitant]
     Active Substance: NORETHINDRONE

REACTIONS (4)
  - Syncope [Recovered/Resolved]
  - Genital haemorrhage [Recovered/Resolved]
  - Device expulsion [Recovered/Resolved]
  - Abdominal pain [Recovered/Resolved]

NARRATIVE: CASE EVENT DATE: 20221128
